FAERS Safety Report 6165863-0 (Version None)
Quarter: 2009Q2

REPORT INFORMATION
  Report Type: 
  Country: None (occurrence: None)
  Receive Date: 20090422
  Receipt Date: 20090413
  Transmission Date: 20091009
  Serious: Yes (Other)
  Sender: FDA-Public Use
  Company Number: CERZ-1000552

PATIENT
  Sex: Female
  Weight: 53 kg

DRUGS (6)
  1. CEREZYME [Suspect]
     Indication: GAUCHER'S DISEASE
     Dosage: 60 U/KG, Q2W, INTRAVENOUS; 75 IU/KG, Q2W
     Route: 042
  2. OXYGEN (OXYGEN) [Concomitant]
  3. TRACLEER [Concomitant]
  4. REVATIO [Concomitant]
  5. DIGOXIN [Concomitant]
  6. CALCIUM (CALCIUM) [Concomitant]

REACTIONS (1)
  - DRUG INEFFECTIVE [None]
